FAERS Safety Report 5941953-X (Version None)
Quarter: 2008Q4

REPORT INFORMATION
  Report Type: 
  Country: None (occurrence: None)
  Receive Date: 20081105
  Receipt Date: 20081030
  Transmission Date: 20090506
  Serious: Yes (Life-Threatening, Hospitalization, Disabling)
  Sender: FDA-Public Use
  Company Number: US-MERCK-0809USA00821

PATIENT
  Age: 43 Year
  Sex: Female

DRUGS (3)
  1. VYTORIN [Suspect]
     Indication: BLOOD CHOLESTEROL INCREASED
     Route: 048
     Dates: start: 20050101, end: 20080101
  2. VERAPAMIL [Concomitant]
     Route: 065
  3. BENICAR [Concomitant]
     Route: 065

REACTIONS (3)
  - DIALYSIS [None]
  - RENAL FAILURE [None]
  - RHABDOMYOLYSIS [None]
